FAERS Safety Report 5397895-4 (Version None)
Quarter: 2007Q3

REPORT INFORMATION
  Report Type: 
  Country: None (occurrence: None)
  Receive Date: 20070726
  Receipt Date: 20070720
  Transmission Date: 20080115
  Serious: Yes (Hospitalization)
  Sender: FDA-Public Use
  Company Number: US-MERCK-0707USA03469

PATIENT
  Age: 49 Year
  Sex: Female

DRUGS (6)
  1. FOSAMAX [Suspect]
     Indication: OSTEOPENIA
     Route: 048
     Dates: start: 20050401, end: 20070718
  2. TOPROL-XL [Concomitant]
     Route: 065
  3. VOLTAREN [Concomitant]
     Route: 065
  4. LYRICA [Concomitant]
     Route: 065
  5. NORCO [Concomitant]
     Route: 065
  6. CLARITIN [Concomitant]
     Route: 065

REACTIONS (2)
  - ARTHROPATHY [None]
  - IMPAIRED HEALING [None]
